FAERS Safety Report 20814242 (Version 4)
Quarter: 2022Q3

REPORT INFORMATION
  Report Type: Spontaneous
  Country: JP (occurrence: JP)
  Receive Date: 20220511
  Receipt Date: 20220728
  Transmission Date: 20221027
  Serious: Yes (Hospitalization, Other)
  Sender: FDA-Public Use
  Company Number: JP-SA-2022SA137895

PATIENT
  Age: 70 Year
  Sex: Male
  Weight: 69.2 kg

DRUGS (12)
  1. DUPIXENT [Suspect]
     Active Substance: DUPILUMAB
     Indication: Chronic eosinophilic rhinosinusitis
     Dosage: 300 MG, QOW
     Route: 058
     Dates: start: 20220318, end: 20220414
  2. MONTELUKAST [Suspect]
     Active Substance: MONTELUKAST SODIUM
     Indication: Asthma
     Dosage: 10 MG, QD
     Route: 048
     Dates: end: 20220430
  3. PRANLUKAST [Suspect]
     Active Substance: PRANLUKAST
     Indication: Sinusitis
     Dosage: 2.5 MG, BID
     Route: 048
     Dates: end: 20220430
  4. CARBOCYSTEINE [Concomitant]
     Active Substance: CARBOCYSTEINE
     Indication: Sinusitis
     Dosage: 500 MG, TID
     Route: 048
     Dates: start: 20220311
  5. PRANLUKAST [Concomitant]
     Active Substance: PRANLUKAST
     Indication: Rhinitis allergic
     Dosage: 225 MG, BID
     Route: 048
     Dates: start: 20220311, end: 20220429
  6. MOMETASONE FUROATE [Concomitant]
     Active Substance: MOMETASONE FUROATE
     Indication: Rhinitis allergic
     Dosage: 2 SPRAYS, QD
     Route: 045
     Dates: start: 20220311
  7. METHYLCOBALAMIN [Concomitant]
     Active Substance: METHYLCOBALAMIN
     Indication: Product used for unknown indication
     Dosage: 500 MG, TID
     Route: 048
  8. AMLODIPINE BESYLATE [Concomitant]
     Active Substance: AMLODIPINE BESYLATE
     Indication: Hypertension
     Dosage: 10 MG, QD
     Route: 048
  9. LOSARTAN POTASSIUM [Concomitant]
     Active Substance: LOSARTAN POTASSIUM
     Indication: Hypertension
     Dosage: 25 MG, QD
     Route: 048
  10. ALLOPURINOL [Concomitant]
     Active Substance: ALLOPURINOL
     Indication: Hyperuricaemia
     Dosage: 100 MG, QD
     Route: 048
  11. ATORVASTATIN CALCIUM TRIHYDRATE [Concomitant]
     Active Substance: ATORVASTATIN CALCIUM TRIHYDRATE
     Indication: Hyperlipidaemia
     Dosage: 5 MG, QD
     Route: 048
  12. FLUTICASONE PROPIONATE [Concomitant]
     Active Substance: FLUTICASONE PROPIONATE
     Indication: Asthma
     Dosage: UNK UNK, BID
     Route: 055

REACTIONS (8)
  - Eosinophilic granulomatosis with polyangiitis [Recovering/Resolving]
  - Pain in extremity [Recovering/Resolving]
  - Purpura [Recovering/Resolving]
  - Pruritus [Recovering/Resolving]
  - Limb discomfort [Recovering/Resolving]
  - Nephritis [Recovering/Resolving]
  - Haematuria [Recovering/Resolving]
  - Neuropathy peripheral [Recovering/Resolving]

NARRATIVE: CASE EVENT DATE: 20220414
